FAERS Safety Report 8811355 (Version 1)
Quarter: 2012Q4

REPORT INFORMATION
  Report Type: 
  Country: CA (occurrence: CA)
  Receive Date: 20120927
  Receipt Date: 20120927
  Transmission Date: 20130627
  Serious: Yes (Death, Other)
  Sender: FDA-Public Use
  Company Number: CA-PURDUE-CAN-2012-0003358

PATIENT
  Age: 53 Year
  Sex: Female
  Weight: 44 kg

DRUGS (3)
  1. OXYCONTIN [Suspect]
     Indication: PRODUCT USED FOR UNKNOWN INDICATION
     Dosage: 10 mg, UNK
     Route: 065
  2. TYLENOL WITH CODEIN #3 [Suspect]
     Indication: PRODUCT USED FOR UNKNOWN INDICATION
     Route: 065
  3. NITRAZEPAM [Suspect]
     Indication: PRODUCT USED FOR UNKNOWN INDICATION
     Dosage: 10 mg, UNK
     Route: 065

REACTIONS (1)
  - Unresponsive to stimuli [Fatal]
